FAERS Safety Report 10594468 (Version 2)
Quarter: 2014Q4

REPORT INFORMATION
  Report Type: Spontaneous
  Country: BE (occurrence: BE)
  Receive Date: 20141119
  Receipt Date: 20141225
  Transmission Date: 20150529
  Serious: Yes (Other)
  Sender: FDA-Public Use
  Company Number: BE-009507513-1411BEL005047

PATIENT
  Age: 64 Year
  Sex: Male

DRUGS (4)
  1. PAROXETINE [Concomitant]
     Active Substance: PAROXETINE\PAROXETINE HYDROCHLORIDE
     Dosage: 40 MG (FREQUENCY UNKNOWN)
  2. MIRTAZAPINE. [Suspect]
     Active Substance: MIRTAZAPINE
     Indication: DEPRESSION
     Dosage: 30 MG (FREQUENCY UNKNOWN)
     Route: 048
  3. OLANZAPINE. [Suspect]
     Active Substance: OLANZAPINE
     Indication: DEPRESSION
     Dosage: 20 MG (FREQUENCY UNKNOWN)
  4. MIANSERIN HYDROCHLORIDE [Concomitant]
     Active Substance: MIANSERIN HYDROCHLORIDE
     Dosage: 60 MG (FREQUENCY UNKNOWN)

REACTIONS (1)
  - Neuroleptic malignant syndrome [Recovered/Resolved]
